FAERS Safety Report 4329879-9 (Version None)
Quarter: 2004Q1

REPORT INFORMATION
  Report Type: 
  Country: None (occurrence: None)
  Receive Date: 20040329
  Receipt Date: 20040317
  Transmission Date: 20041129
  Serious: Yes (Other)
  Sender: FDA-Public Use
  Company Number: JP-JNJFOC-20040304722

PATIENT
  Age: 49 Year
  Sex: Male

DRUGS (5)
  1. RISPERDAL [Suspect]
     Dosage: SEE IMAGE
     Route: 048
     Dates: start: 20040304
  2. PAROXETINE HCL [Suspect]
     Dosage: 20 MG, IN 1 DAY, ORAL
     Route: 048
     Dates: start: 20040304, end: 20040314
  3. LITHIUM CARBONATE [Concomitant]
  4. FLUNITRAZEPAM (FLUNITRAZEPAM) [Concomitant]
  5. LEVOMEPROMAZINE (LEVOMEPROMAZINE) [Concomitant]

REACTIONS (3)
  - DRUG INTERACTION [None]
  - HYPERHIDROSIS [None]
  - SEROTONIN SYNDROME [None]
